FAERS Safety Report 23983399 (Version 1)
Quarter: 2024Q2

REPORT INFORMATION
  Report Type: Spontaneous
  Country: JP (occurrence: JP)
  Receive Date: 20240617
  Receipt Date: 20240617
  Transmission Date: 20240715
  Serious: Yes (Hospitalization)
  Sender: FDA-Public Use
  Company Number: JP-MALLINCKRODT-MNK202403803

PATIENT
  Age: 6 Decade
  Sex: Female

DRUGS (1)
  1. AMITIZA [Suspect]
     Active Substance: LUBIPROSTONE
     Indication: Product used for unknown indication
     Dosage: UNKNOWN
     Route: 048
     Dates: start: 20240606

REACTIONS (2)
  - Blood pressure increased [Unknown]
  - Palpitations [Unknown]
